FAERS Safety Report 10525012 (Version 1)
Quarter: 2014Q4

REPORT INFORMATION
  Report Type: Spontaneous
  Country: US (occurrence: None)
  Receive Date: 20141015
  Receipt Date: 20141015
  Transmission Date: 20150528
  Serious: Yes (Other)
  Sender: FDA-Public Use
  Company Number: 2014-US-011580

PATIENT
  Age: 53 Year
  Sex: Female
  Weight: 65.3 kg

DRUGS (2)
  1. XYREM [Suspect]
     Active Substance: SODIUM OXYBATE
     Indication: NARCOLEPSY
     Route: 048
     Dates: start: 200712, end: 2008
  2. PROGESTERONE. [Suspect]
     Active Substance: PROGESTERONE
     Indication: HORMONE REPLACEMENT THERAPY
     Route: 048

REACTIONS (4)
  - Intentional overdose [None]
  - Prescribed overdose [None]
  - Hypothyroidism [None]
  - Epigastric discomfort [None]

NARRATIVE: CASE EVENT DATE: 2013
